FAERS Safety Report 9393841 (Version 1)
Quarter: 2013Q3

REPORT INFORMATION
  Report Type: Report from Study
  Country: FI (occurrence: FI)
  Receive Date: 20130710
  Receipt Date: 20130710
  Transmission Date: 20140515
  Serious: Yes (Other)
  Sender: FDA-Public Use
  Company Number: FI-BAXTER-2013BAX026966

PATIENT
  Sex: 0

DRUGS (3)
  1. HOLOXAN [Suspect]
     Indication: CHEMOTHERAPY
     Dosage: 3 G/M2
     Route: 042
  2. UROMITEXAN [Suspect]
     Indication: CHEMOTHERAPY
     Route: 042
  3. DOCETAXEL [Suspect]
     Indication: CHEMOTHERAPY
     Dosage: 40-60 MG/M2
     Route: 065

REACTIONS (1)
  - Renal failure [Unknown]
